FAERS Safety Report 4546959-3 (Version None)
Quarter: 2005Q1

REPORT INFORMATION
  Report Type: 
  Country: None (occurrence: None)
  Receive Date: 20050105
  Receipt Date: 20041223
  Transmission Date: 20050727
  Serious: Yes (Hospitalization)
  Sender: FDA-Public Use
  Company Number: SEWYE308028DEC04

PATIENT
  Age: 41 Year
  Sex: Male

DRUGS (3)
  1. EFFEXOR [Suspect]
     Indication: DEPRESSION
     Dosage: 75 MG 2X PER 1 DAY
     Route: 048
     Dates: start: 20020101, end: 20030501
  2. ALVEDON (PARACETAMOL) [Concomitant]
  3. NOBLIGAN (TRAMADOL HYDROCHLORIDE, , 0) [Suspect]
     Dosage: 50 MG 3X PER 1 DAY
     Dates: start: 20010101, end: 20030401

REACTIONS (5)
  - ABDOMINAL PAIN [None]
  - CONSTIPATION [None]
  - VOLVULUS OF BOWEL [None]
  - VOMITING [None]
  - WEIGHT DECREASED [None]
